FAERS Safety Report 8276390-9 (Version None)
Quarter: 2012Q2

REPORT INFORMATION
  Report Type: 
  Country: None (occurrence: None)
  Receive Date: 20120412
  Receipt Date: 20120409
  Transmission Date: 20120825
  Serious: Yes (Life-Threatening, Other)
  Sender: FDA-Public Use
  Company Number: JP-JNJFOC-20110205814

PATIENT
  Sex: Female
  Weight: 53 kg

DRUGS (99)
  1. DORIPENEM MONOHYDRATE [Concomitant]
     Route: 042
     Dates: start: 20101122, end: 20101122
  2. DECADRON [Concomitant]
     Indication: PROPHYLAXIS
     Route: 048
     Dates: start: 20100728, end: 20100729
  3. PRIMPERAN TAB [Concomitant]
     Route: 042
     Dates: start: 20100806, end: 20100806
  4. DAI-KENCHU-TO [Concomitant]
     Indication: SUBILEUS
     Route: 048
     Dates: start: 20100630, end: 20100706
  5. FAMOTIDINE [Concomitant]
     Route: 042
     Dates: start: 20101105, end: 20101105
  6. FAMOTIDINE [Concomitant]
     Route: 042
     Dates: start: 20101125, end: 20101130
  7. FIRSTCIN [Concomitant]
     Indication: INTESTINAL OBSTRUCTION
     Route: 042
     Dates: start: 20100806, end: 20100809
  8. TPN ELECTROLYTES IN PLASTIC CONTAINER [Concomitant]
     Route: 042
     Dates: start: 20101019, end: 20101019
  9. IMMUNOGLOBULIN HUMAN NORMAL [Concomitant]
     Route: 042
     Dates: start: 20101124, end: 20101128
  10. DOXORUBICIN HCL [Suspect]
     Dosage: CYCLE 6
     Route: 042
     Dates: start: 20100421, end: 20100421
  11. DOXORUBICIN HCL [Suspect]
     Dosage: CYCLE 10
     Route: 042
     Dates: start: 20101108, end: 20101108
  12. ELNEOPA NO 1 [Concomitant]
     Route: 041
     Dates: start: 20101216, end: 20101220
  13. LEVOFLOXACIN [Concomitant]
     Indication: LEUKOPENIA
     Route: 048
     Dates: start: 20100630, end: 20100706
  14. FAMOTIDINE [Concomitant]
     Indication: PROPHYLAXIS
     Route: 048
     Dates: start: 20100929, end: 20101012
  15. FAMOTIDINE [Concomitant]
     Route: 042
     Dates: start: 20101017, end: 20101019
  16. FAMOTIDINE [Concomitant]
     Route: 042
     Dates: start: 20101109, end: 20101111
  17. MUCOSTA [Concomitant]
     Route: 048
     Dates: start: 20101016, end: 20101020
  18. ALL OTHER THERAPEUTIC DRUG [Concomitant]
     Indication: INTESTINAL OBSTRUCTION
     Route: 042
     Dates: start: 20100806, end: 20100811
  19. SOLDEM 3A [Concomitant]
     Route: 042
     Dates: start: 20101019, end: 20101019
  20. LACTEC [Concomitant]
     Route: 042
     Dates: start: 20100806, end: 20100806
  21. FENTANYL CITRATE [Concomitant]
     Route: 042
     Dates: start: 20101201, end: 20101202
  22. TPN ELECTROLYTES IN PLASTIC CONTAINER [Concomitant]
     Route: 042
     Dates: start: 20101018, end: 20101018
  23. TPN ELECTROLYTES IN PLASTIC CONTAINER [Concomitant]
     Route: 042
     Dates: start: 20101112, end: 20101112
  24. ALBUMIN (HUMAN) [Concomitant]
     Route: 042
     Dates: start: 20101129, end: 20101130
  25. SOLU-MEDROL [Concomitant]
     Route: 042
     Dates: start: 20101109, end: 20101110
  26. CEFTAZIDIME SODIUM [Concomitant]
     Route: 042
     Dates: start: 20101120, end: 20101120
  27. ALL OTHER THERAPEUTIC DRUGS [Concomitant]
     Route: 042
     Dates: start: 20101105, end: 20101105
  28. MEROPENEM [Concomitant]
     Indication: SEPTIC SHOCK
     Route: 041
     Dates: start: 20101215, end: 20101222
  29. DOXORUBICIN HCL [Suspect]
     Dosage: CYCLE 8
     Route: 042
     Dates: start: 20100728, end: 20100728
  30. DOXORUBICIN HCL [Suspect]
     Dosage: CYCLE 7
     Route: 042
     Dates: start: 20100616, end: 20100616
  31. ANPEC (MORPHINE HYDROCHLORIDE) [Concomitant]
     Route: 054
     Dates: start: 20110107
  32. CEFAZOLIN SODIUM [Concomitant]
     Indication: DIARRHOEA
     Dosage: 2 DF
     Route: 048
     Dates: start: 20110126, end: 20110101
  33. CELEBREX [Concomitant]
     Indication: PRODUCT USED FOR UNKNOWN INDICATION
     Dosage: 2 DF
     Route: 048
     Dates: start: 20110130
  34. FAMOTIDINE [Concomitant]
     Route: 042
     Dates: start: 20101201, end: 20101205
  35. FAMOTIDINE [Concomitant]
     Route: 042
     Dates: start: 20100806, end: 20100811
  36. ALL OTHER THERAPEUTIC DRUG [Concomitant]
     Route: 042
     Dates: start: 20101105, end: 20101105
  37. TPN ELECTROLYTES IN PLASTIC CONTAINER [Concomitant]
     Route: 042
     Dates: start: 20101017, end: 20101017
  38. TPN ELECTROLYTES IN PLASTIC CONTAINER [Concomitant]
     Route: 042
     Dates: start: 20101123, end: 20101124
  39. TPN ELECTROLYTES IN PLASTIC CONTAINER [Concomitant]
     Route: 042
     Dates: start: 20101107, end: 20101107
  40. KAKODIN [Concomitant]
     Indication: SEPTIC SHOCK
     Route: 041
     Dates: start: 20101217, end: 20101224
  41. DOXORUBICIN HCL [Suspect]
     Dosage: CYCLE 2
     Route: 042
     Dates: start: 20091125, end: 20091125
  42. PRIMPERAN TAB [Concomitant]
     Indication: NAUSEA
     Route: 048
     Dates: end: 20101121
  43. SELBEX [Concomitant]
     Route: 048
     Dates: start: 20100630, end: 20101121
  44. EMEND [Concomitant]
     Indication: PROPHYLAXIS
     Route: 048
     Dates: start: 20100729, end: 20100730
  45. EMEND [Concomitant]
     Route: 048
     Dates: start: 20100728, end: 20100728
  46. HEPARIN [Concomitant]
     Indication: PROPHYLAXIS
     Route: 061
     Dates: start: 20101204, end: 20101227
  47. FAMOTIDINE [Concomitant]
     Route: 042
     Dates: start: 20101121, end: 20101121
  48. NEUTROGIN [Concomitant]
     Route: 058
     Dates: start: 20101122, end: 20101205
  49. DOXORUBICIN HCL [Suspect]
     Dosage: CYCLE 3
     Route: 042
     Dates: start: 20100106, end: 20100106
  50. DOXORUBICIN HCL [Suspect]
     Dosage: CYCLE 1
     Route: 042
     Dates: start: 20091023, end: 20091023
  51. DORIPENEM MONOHYDRATE [Concomitant]
     Route: 042
     Dates: start: 20101123, end: 20101205
  52. LENDORMIN [Concomitant]
     Indication: INSOMNIA
     Route: 048
  53. MAGMITT [Concomitant]
     Indication: CONSTIPATION
     Route: 048
     Dates: end: 20101121
  54. MOHRUS TAPE [Concomitant]
     Indication: BACK PAIN
     Route: 062
  55. ISODINE GARGLE [Concomitant]
     Indication: DRY MOUTH
     Dosage: 10.0 DF
     Route: 049
     Dates: start: 20101213, end: 20101220
  56. ELNEOPA NO 1 [Concomitant]
     Route: 041
     Dates: start: 20101215, end: 20101215
  57. ALL OTHER THERAPEUTIC DRUGS [Concomitant]
     Indication: LIVER DISORDER
     Route: 042
     Dates: start: 20101220, end: 20101224
  58. FAMOTIDINE [Concomitant]
     Route: 042
     Dates: start: 20101112, end: 20101112
  59. FLOMOX [Concomitant]
     Route: 048
     Dates: start: 20101003, end: 20101011
  60. BUPRENORPHINE HCL [Concomitant]
     Indication: CANCER PAIN
     Route: 054
     Dates: start: 20101108, end: 20101119
  61. ALL OTHER THERAPEUTIC DRUG [Concomitant]
     Route: 042
     Dates: start: 20101106, end: 20101107
  62. FENTANYL CITRATE [Concomitant]
     Route: 042
     Dates: start: 20101203, end: 20101205
  63. TPN ELECTROLYTES IN PLASTIC CONTAINER [Concomitant]
     Route: 042
     Dates: start: 20101125, end: 20101130
  64. TPN ELECTROLYTES IN PLASTIC CONTAINER [Concomitant]
     Route: 042
     Dates: start: 20101122, end: 20101122
  65. SEISHOKU [Concomitant]
     Route: 042
  66. PROCHLORPERAZINE [Concomitant]
     Indication: NAUSEA
     Dosage: 3 DF
     Route: 048
     Dates: start: 20110131, end: 20110216
  67. NEUTROGIN [Concomitant]
     Indication: NEUTROPENIA
     Route: 058
     Dates: start: 20110122, end: 20110127
  68. SOLDEM 3A [Concomitant]
     Route: 042
     Dates: start: 20101105, end: 20101105
  69. LACTEC [Concomitant]
     Route: 042
     Dates: start: 20101201, end: 20101201
  70. TPN ELECTROLYTES IN PLASTIC CONTAINER [Concomitant]
     Route: 042
     Dates: start: 20100806, end: 20100809
  71. TPN ELECTROLYTES IN PLASTIC CONTAINER [Concomitant]
     Route: 042
     Dates: start: 20101201, end: 20101205
  72. TPN ELECTROLYTES IN PLASTIC CONTAINER [Concomitant]
     Route: 042
     Dates: start: 20101121, end: 20101121
  73. CEFTAZIDIME SODIUM [Concomitant]
     Route: 042
     Dates: start: 20101121, end: 20101122
  74. PENTAZOCIN [Concomitant]
     Route: 065
     Dates: start: 20101104, end: 20101104
  75. DOXORUBICIN HCL [Suspect]
     Dosage: CYCLE 4
     Route: 042
     Dates: start: 20100210, end: 20100210
  76. FENTANYL-100 [Concomitant]
     Route: 062
     Dates: start: 20101228, end: 20110106
  77. LOXONIN [Concomitant]
     Route: 048
     Dates: start: 20100630, end: 20101121
  78. DIBASIC POTASSIUM PHOSPHATE INORGANIC SALTS COMBINED DRUG [Concomitant]
     Indication: DRY MOUTH
     Dosage: 50 G
     Route: 049
     Dates: start: 20101221, end: 20101228
  79. FAMOTIDINE [Concomitant]
     Route: 042
     Dates: start: 20101106, end: 20101107
  80. VOLTAREN [Concomitant]
     Route: 054
     Dates: start: 20101023
  81. LOXONIN [Concomitant]
     Indication: CANCER PAIN
     Route: 062
     Dates: start: 20101124
  82. SOLDEM 3A [Concomitant]
     Route: 042
     Dates: start: 20101124, end: 20101130
  83. SANDOSTATIN [Concomitant]
     Route: 058
     Dates: start: 20101122, end: 20101129
  84. TPN ELECTROLYTES IN PLASTIC CONTAINER [Concomitant]
     Route: 042
     Dates: start: 20101023, end: 20101023
  85. DOXORUBICIN HCL [Suspect]
     Indication: OVARIAN CANCER RECURRENT
     Dosage: CYCLE 5
     Route: 042
     Dates: start: 20100317, end: 20100317
  86. DOXORUBICIN HCL [Suspect]
     Dosage: CYCLE 9
     Route: 042
     Dates: start: 20100915, end: 20100915
  87. FENTANYL-100 [Concomitant]
     Indication: CANCER PAIN
     Route: 062
     Dates: start: 20101222, end: 20110104
  88. PURSENNID [Concomitant]
     Indication: CONSTIPATION
     Route: 048
     Dates: end: 20101121
  89. CATLEP [Concomitant]
     Indication: BACK PAIN
     Route: 061
     Dates: end: 20101121
  90. ANPEC (MORPHINE HYDROCHLORIDE) [Concomitant]
     Indication: CANCER PAIN
     Route: 054
     Dates: start: 20101220, end: 20110106
  91. SCOPOLAMINE [Concomitant]
     Indication: SUBILEUS
     Route: 048
     Dates: start: 20100630, end: 20100713
  92. FAMOTIDINE [Concomitant]
     Route: 042
     Dates: start: 20101122, end: 20101122
  93. FAMOTIDINE [Concomitant]
     Route: 042
     Dates: start: 20101123, end: 20101124
  94. FAMOTIDINE [Concomitant]
     Route: 042
     Dates: start: 20101023, end: 20101023
  95. DEXALTIN [Concomitant]
     Indication: STOMATITIS
     Route: 049
     Dates: start: 20101004
  96. TPN ELECTROLYTES IN PLASTIC CONTAINER [Concomitant]
     Route: 042
     Dates: start: 20100810, end: 20100811
  97. TPN ELECTROLYTES IN PLASTIC CONTAINER [Concomitant]
     Route: 042
     Dates: start: 20101109, end: 20101111
  98. DOPAMINE HCL [Concomitant]
     Route: 042
     Dates: start: 20101124, end: 20101130
  99. ACETATED RINGER [Concomitant]
     Route: 042
     Dates: start: 20101104, end: 20101104

REACTIONS (5)
  - NEUTROPENIA [None]
  - SEPSIS [None]
  - INTESTINAL OBSTRUCTION [None]
  - SEPTIC SHOCK [None]
  - LEUKOPENIA [None]
